FAERS Safety Report 25543109 (Version 1)
Quarter: 2025Q3

REPORT INFORMATION
  Report Type: Spontaneous
  Country: US (occurrence: US)
  Receive Date: 20250711
  Receipt Date: 20250711
  Transmission Date: 20251021
  Serious: No
  Sender: GLENMARK
  Company Number: US-GLENMARK PHARMACEUTICALS-2024GMK095802

PATIENT

DRUGS (2)
  1. ADAPALENE [Suspect]
     Active Substance: ADAPALENE
     Indication: Skin disorder
     Route: 065
  2. ADAPALENE [Suspect]
     Active Substance: ADAPALENE
     Indication: Blepharal pigmentation

REACTIONS (2)
  - Dry skin [Unknown]
  - Drug effective for unapproved indication [Unknown]
